FAERS Safety Report 6099944-7 (Version None)
Quarter: 2009Q1

REPORT INFORMATION
  Report Type: 
  Country: None (occurrence: None)
  Receive Date: 20090226
  Receipt Date: 20090217
  Transmission Date: 20090719
  Serious: Yes (Hospitalization)
  Sender: FDA-Public Use
  Company Number: GXKR2009GR02072

PATIENT
  Age: 70 Year
  Sex: Male

DRUGS (2)
  1. VALPROIC ACID [Suspect]
     Indication: POST-TRAUMATIC EPILEPSY
     Dosage: 500 MG/DAY
  2. DIGOXIN [Concomitant]

REACTIONS (4)
  - ANAEMIA [None]
  - ASPIRATION PLEURAL CAVITY [None]
  - PLEURAL EFFUSION [None]
  - PYREXIA [None]
